FAERS Safety Report 7763124-7 (Version None)
Quarter: 2011Q3

REPORT INFORMATION
  Report Type: 
  Country: None (occurrence: None)
  Receive Date: 20110920
  Receipt Date: 20110908
  Transmission Date: 20111222
  Serious: Yes (Hospitalization, Disabling)
  Sender: FDA-Public Use
  Company Number: PHHY2011PL80352

PATIENT
  Sex: Female
  Weight: 56 kg

DRUGS (2)
  1. SUNITINIB MALATE [Concomitant]
     Indication: GASTROINTESTINAL STROMAL TUMOUR
     Dates: start: 20101201
  2. GLEEVEC [Suspect]
     Indication: GASTROINTESTINAL STROMAL TUMOUR
     Dosage: 300 MG, DAILY
     Route: 048
     Dates: start: 20100601, end: 20101201

REACTIONS (4)
  - RASH GENERALISED [None]
  - SKIN LESION [None]
  - RASH PAPULAR [None]
  - DRUG ERUPTION [None]
